FAERS Safety Report 9121058 (Version 1)
Quarter: 2013Q1

REPORT INFORMATION
  Report Type: Spontaneous
  Country: NO (occurrence: NO)
  Receive Date: 20130226
  Receipt Date: 20130226
  Transmission Date: 20140127
  Serious: Yes (Hospitalization)
  Sender: FDA-Public Use
  Company Number: NO-PFIZER INC-2013067663

PATIENT
  Age: 66 Year
  Sex: Female

DRUGS (4)
  1. CHAMPIX [Suspect]
     Indication: SMOKING CESSATION THERAPY
     Dosage: 0.5 MG, 2X/DAY
     Route: 048
     Dates: start: 20130109, end: 20130111
  2. RIVOTRIL [Concomitant]
     Indication: BIPOLAR DISORDER
     Dosage: 0.5 MG, 3X/DAY
     Route: 048
  3. TOLVON [Concomitant]
     Indication: BIPOLAR DISORDER
     Dosage: 60 MG, UNK
     Route: 048
  4. LITHIONIT [Concomitant]
     Indication: BIPOLAR DISORDER
     Dosage: 42 + 84 MG/DAY
     Route: 048

REACTIONS (5)
  - Swelling face [Recovering/Resolving]
  - Chronic obstructive pulmonary disease [Recovering/Resolving]
  - Hypersomnia [Recovering/Resolving]
  - Erythema [Recovering/Resolving]
  - Local swelling [Recovering/Resolving]
